FAERS Safety Report 6463717-3 (Version None)
Quarter: 2009Q4

REPORT INFORMATION
  Report Type: 
  Country: None (occurrence: None)
  Receive Date: 20091201
  Receipt Date: 20091127
  Transmission Date: 20100525
  Serious: Yes (Death)
  Sender: FDA-Public Use
  Company Number: AU-ASTRAZENECA-2009SE29055

PATIENT
  Age: 34202 Day
  Sex: Female

DRUGS (3)
  1. CRESTOR [Suspect]
     Indication: METABOLIC DISORDER
     Route: 048
     Dates: start: 20071115, end: 20080715
  2. IBUPROFEN [Suspect]
     Indication: PAIN
     Route: 065
  3. BLACKMORES HERBAL DIURETIC [Suspect]
     Route: 065

REACTIONS (3)
  - ASTHENIA [None]
  - HEPATIC FAILURE [None]
  - MUSCULAR WEAKNESS [None]
